FAERS Safety Report 25072712 (Version 1)
Quarter: 2025Q1

REPORT INFORMATION
  Report Type: Spontaneous
  Country: US (occurrence: US)
  Receive Date: 20250313
  Receipt Date: 20250313
  Transmission Date: 20250409
  Serious: Yes (Hospitalization, Other)
  Sender: CHEPLAPHARM
  Company Number: US-ROCHE-10000218272

PATIENT
  Sex: Female

DRUGS (17)
  1. CAPECITABINE [Suspect]
     Active Substance: CAPECITABINE
     Indication: Product used for unknown indication
     Dosage: 800 MG (500 MG TAB + 2 X 150 MG TABS) BID BY ONE WEEK FOR CYCLE 19/ON 07-DEC-2023, SHE STARTED TH...
     Route: 048
     Dates: start: 20231207
  2. CAPECITABINE [Suspect]
     Active Substance: CAPECITABINE
     Indication: Product used for unknown indication
     Dosage: DOSE REDUCTION OF CAPECITABINE WAS MADE, FROM 1500 MG BID (CYCLE 2) TO 1000 MG BID.
     Dates: start: 20240118
  3. KADCYLA [Suspect]
     Active Substance: ADO-TRASTUZUMAB EMTANSINE
     Indication: Product used for unknown indication
     Dates: start: 20221125, end: 20230126
  4. KADCYLA [Suspect]
     Active Substance: ADO-TRASTUZUMAB EMTANSINE
     Indication: Product used for unknown indication
     Dates: start: 20221125, end: 20230825
  5. PERTUZUMAB\TRASTUZUMAB [Suspect]
     Active Substance: PERTUZUMAB\TRASTUZUMAB
     Indication: Product used for unknown indication
     Dates: start: 20230316, end: 20230825
  6. TRASTUZUMAB [Suspect]
     Active Substance: TRASTUZUMAB
     Indication: Product used for unknown indication
     Route: 042
     Dates: start: 20230309
  7. TRASTUZUMAB [Suspect]
     Active Substance: TRASTUZUMAB
     Indication: Product used for unknown indication
     Route: 042
     Dates: start: 20231207
  8. TUKYSA [Suspect]
     Active Substance: TUCATINIB
     Indication: Product used for unknown indication
     Dosage: THERAPY START DATE: 07-DEC-2023?DAILY DOSE: 400 MILLIGRAM
     Dates: start: 20231207
  9. TUKYSA [Suspect]
     Active Substance: TUCATINIB
     Indication: Product used for unknown indication
     Dosage: DOSE OF TUCATINIB WAS REDUCED TO 250 MG BID ?DAILY DOSE: 500 MILLIGRAM
     Dates: start: 202404
  10. TUKYSA [Suspect]
     Active Substance: TUCATINIB
     Indication: Product used for unknown indication
     Dosage: THE DOSE OF TUCATINIB WAS FURTHER REDUCED TO 200 MG BID DUE TO PERSISTENT DIARRHEA
     Dates: start: 202405
  11. TUKYSA [Suspect]
     Active Substance: TUCATINIB
     Indication: Product used for unknown indication
     Dosage: DAILY DOSE: 300 MILLIGRAM
     Route: 048
  12. TUKYSA [Suspect]
     Active Substance: TUCATINIB
     Indication: Product used for unknown indication
     Dosage: DAILY DOSE: 100 MILLIGRAM
     Route: 048
  13. LETROZOLE [Suspect]
     Active Substance: LETROZOLE
     Indication: Product used for unknown indication
     Dosage: DAILY DOSE: 2.5 MILLIGRAM
     Dates: start: 20230426
  14. ARIMIDEX [Suspect]
     Active Substance: ANASTROZOLE
     Indication: Product used for unknown indication
     Dates: start: 20230126, end: 20230208
  15. ARIMIDEX [Suspect]
     Active Substance: ANASTROZOLE
     Indication: Drug intolerance
     Dates: start: 20230126, end: 20230208
  16. ARIMIDEX [Suspect]
     Active Substance: ANASTROZOLE
     Indication: Product used for unknown indication
     Dates: start: 20230308
  17. ARIMIDEX [Suspect]
     Active Substance: ANASTROZOLE
     Indication: Drug intolerance
     Dates: start: 20230308

REACTIONS (12)
  - Diarrhoea [Recovering/Resolving]
  - Hypokalaemia [Unknown]
  - Asthenia [Unknown]
  - HER2 positive breast cancer [Unknown]
  - Neuropathy peripheral [Unknown]
  - Dermatitis [Recovered/Resolved]
  - COVID-19 [Unknown]
  - Herpes zoster [Unknown]
  - Arthralgia [Unknown]
  - Myalgia [Unknown]
  - Palmar-plantar erythrodysaesthesia syndrome [Unknown]
  - Drug eruption [Unknown]

NARRATIVE: CASE EVENT DATE: 20221115
